FAERS Safety Report 17756197 (Version 2)
Quarter: 2020Q2

REPORT INFORMATION
  Report Type: Spontaneous
  Country: US (occurrence: US)
  Receive Date: 20200507
  Receipt Date: 20200623
  Transmission Date: 20200714
  Serious: Yes (Other)
  Sender: FDA-Public Use
  Company Number: US-BAYER-2020-078968

PATIENT
  Age: 29 Year
  Sex: Female
  Weight: 73.02 kg

DRUGS (1)
  1. KYLEENA [Suspect]
     Active Substance: LEVONORGESTREL
     Indication: CONTRACEPTION
     Dosage: 17.5 ?G PER DAY CONTINUOUSLY
     Route: 015
     Dates: start: 20180606, end: 2020

REACTIONS (6)
  - Hydrometra [None]
  - Pregnancy with contraceptive device [None]
  - Drug ineffective [None]
  - Endometrial thickening [None]
  - Abortion spontaneous [None]
  - Oligomenorrhoea [None]

NARRATIVE: CASE EVENT DATE: 2020
